FAERS Safety Report 7985580-1 (Version None)
Quarter: 2011Q4

REPORT INFORMATION
  Report Type: 
  Country: None (occurrence: None)
  Receive Date: 20111216
  Receipt Date: 20111213
  Transmission Date: 20120403
  Serious: No
  Sender: FDA-Public Use
  Company Number: US-PFIZER INC-2011267582

PATIENT
  Sex: Female

DRUGS (1)
  1. IBUPROFEN (ADVIL) [Suspect]
     Indication: INFLAMMATION
     Dosage: 200 MG, 3X/DAY
     Route: 048
     Dates: start: 20111026

REACTIONS (1)
  - ABDOMINAL DISCOMFORT [None]
